FAERS Safety Report 13001365 (Version 2)
Quarter: 2016Q4

REPORT INFORMATION
  Report Type: Spontaneous
  Country: JP (occurrence: JP)
  Receive Date: 20161206
  Receipt Date: 20161208
  Transmission Date: 20170207
  Serious: Yes (Other)
  Sender: FDA-Public Use
  Company Number: PHJP2016JP035026

PATIENT
  Sex: Female
  Weight: 55 kg

DRUGS (3)
  1. CICLOSPORIN [Suspect]
     Active Substance: CYCLOSPORINE
     Indication: PSORIASIS
     Dosage: 150 MG, QD, BEFORE BREAKFAST
     Route: 048
     Dates: start: 201603
  2. SECUKINUMAB [Concomitant]
     Active Substance: SECUKINUMAB
     Indication: PSORIASIS
     Dosage: 300 MG, UNK
     Route: 058
     Dates: start: 20160523
  3. CICLOSPORIN [Suspect]
     Active Substance: CYCLOSPORINE
     Dosage: 100 MG, QOD
     Route: 048
     Dates: start: 20160428

REACTIONS (8)
  - Erythema [Unknown]
  - Blood pressure increased [Unknown]
  - Nail psoriasis [Unknown]
  - Rash pruritic [Unknown]
  - Blood uric acid increased [Unknown]
  - Hydronephrosis [Unknown]
  - Nephrolithiasis [Unknown]
  - Renal impairment [Unknown]

NARRATIVE: CASE EVENT DATE: 201604
